FAERS Safety Report 4497495-4 (Version None)
Quarter: 2004Q4

REPORT INFORMATION
  Report Type: 
  Country: None (occurrence: None)
  Receive Date: 20041110
  Receipt Date: 20041021
  Transmission Date: 20050328
  Serious: Yes (Death)
  Sender: FDA-Public Use
  Company Number: GB-ROCHE-383929

PATIENT
  Age: 28 Year
  Sex: Male

DRUGS (16)
  1. DACLIZUMAB [Suspect]
     Route: 042
     Dates: start: 20041005, end: 20041005
  2. DACLIZUMAB [Suspect]
     Route: 042
     Dates: start: 20041012, end: 20041012
  3. MYCOPHENOLATE MOFETIL [Suspect]
     Route: 042
     Dates: start: 20041006, end: 20041020
  4. TACROLIMUS [Suspect]
     Route: 048
     Dates: start: 20041010, end: 20041011
  5. TACROLIMUS [Suspect]
     Dosage: 4 MG AM, 5 MG PM
     Route: 048
     Dates: start: 20041012, end: 20041012
  6. TACROLIMUS [Suspect]
     Dosage: 5MG AM, 6 MG PM
     Route: 048
     Dates: start: 20041013, end: 20041013
  7. TACROLIMUS [Suspect]
     Route: 048
     Dates: start: 20041014, end: 20041020
  8. HYDROCORTISONE [Suspect]
     Route: 065
     Dates: start: 20041006, end: 20041007
  9. PREDNISONE [Suspect]
     Route: 065
     Dates: start: 20041008, end: 20041010
  10. PREDNISONE [Suspect]
     Route: 065
     Dates: start: 20041011, end: 20041013
  11. PREDNISONE [Suspect]
     Route: 065
     Dates: start: 20041014, end: 20041020
  12. CEFTAZIDIME [Concomitant]
     Indication: BACTERIAL INFECTION
     Dates: start: 20041006, end: 20041020
  13. CHLORHEXIDINE [Concomitant]
     Indication: PROPHYLAXIS
     Dates: start: 20041007, end: 20041008
  14. CREON [Concomitant]
     Indication: ENZYME SUPPLEMENTATION
     Dates: start: 19950315, end: 20041019
  15. TOBRAMYCIN [Concomitant]
     Indication: BACTERIAL INFECTION
     Dates: start: 20041005, end: 20041020
  16. VANCOMYCIN [Concomitant]
     Indication: BACTERIAL INFECTION
     Dates: start: 20041008, end: 20041020

REACTIONS (9)
  - BACTERIA SPUTUM IDENTIFIED [None]
  - DIABETES MELLITUS [None]
  - DIALYSIS [None]
  - DYSPNOEA [None]
  - GENERAL PHYSICAL HEALTH DETERIORATION [None]
  - MULTI-ORGAN FAILURE [None]
  - SEPSIS [None]
  - STAPHYLOCOCCAL INFECTION [None]
  - TRANSPLANT REJECTION [None]
